FAERS Safety Report 6416860-9 (Version None)
Quarter: 2009Q4

REPORT INFORMATION
  Report Type: 
  Country: None (occurrence: None)
  Receive Date: 20091027
  Receipt Date: 20091021
  Transmission Date: 20100525
  Serious: Yes (Hospitalization)
  Sender: FDA-Public Use
  Company Number: CA-ABBOTT-09P-028-0592779-00

PATIENT
  Sex: Female
  Weight: 73.548 kg

DRUGS (24)
  1. HUMIRA [Suspect]
     Indication: CROHN'S DISEASE
     Route: 058
     Dates: start: 20090724, end: 20090808
  2. BIRTH CONTROL [Concomitant]
     Indication: DRUG USE FOR UNKNOWN INDICATION
  3. HISTANTIL [Concomitant]
     Indication: DRUG USE FOR UNKNOWN INDICATION
     Dosage: 1 TO 2 TABLETS AT BEDTIME
  4. NOVOTRIPTYN [Concomitant]
     Indication: DRUG USE FOR UNKNOWN INDICATION
     Dosage: AT BEDTIME
  5. EUROFOLIC [Concomitant]
     Indication: DRUG USE FOR UNKNOWN INDICATION
  6. STEMETIL [Concomitant]
     Indication: DRUG USE FOR UNKNOWN INDICATION
     Dosage: PRN IF NAUSEOUS
  7. HYDROVAL [Concomitant]
     Indication: DRUG USE FOR UNKNOWN INDICATION
  8. NOVO-VENLAFAXIN XR [Concomitant]
     Indication: DRUG USE FOR UNKNOWN INDICATION
  9. LACTULOSE [Concomitant]
     Indication: DRUG USE FOR UNKNOWN INDICATION
  10. METHOTREXATE [Concomitant]
     Indication: DRUG USE FOR UNKNOWN INDICATION
     Dosage: 4 TABLETS ONCE A WEEK
  11. SERAX [Concomitant]
     Indication: DRUG USE FOR UNKNOWN INDICATION
     Dosage: AT BEDTIME
  12. ATIVAN [Concomitant]
     Indication: DRUG USE FOR UNKNOWN INDICATION
     Dosage: PRN
  13. PREDNISONE TAB [Concomitant]
     Indication: DRUG USE FOR UNKNOWN INDICATION
     Dosage: WEANING DOWN
  14. ADVAIR DISKUS 100/50 [Concomitant]
     Indication: DRUG USE FOR UNKNOWN INDICATION
  15. VENTOLIN [Concomitant]
     Indication: DRUG USE FOR UNKNOWN INDICATION
  16. FLOVENT [Concomitant]
     Indication: DRUG USE FOR UNKNOWN INDICATION
  17. RALTAC [Concomitant]
     Indication: DRUG USE FOR UNKNOWN INDICATION
     Dosage: PRN
  18. FLEXERIL [Concomitant]
     Indication: DRUG USE FOR UNKNOWN INDICATION
     Dosage: HS
  19. HYDROMORPHONE [Concomitant]
     Indication: DRUG USE FOR UNKNOWN INDICATION
     Dosage: 3 TABS IN AM, 2 TABS IN PM
  20. DILAUDID [Concomitant]
     Indication: DRUG USE FOR UNKNOWN INDICATION
     Dosage: EVERY 3 HOURS PRN
  21. RAN-RABEPRAZOLE [Concomitant]
     Indication: DRUG USE FOR UNKNOWN INDICATION
  22. PROTILOL [Concomitant]
     Indication: DRUG USE FOR UNKNOWN INDICATION
     Dosage: PRN
  23. DICETEL [Concomitant]
     Indication: ABDOMINAL PAIN
  24. CALCIUM WITH VITAMIN D [Concomitant]
     Indication: DRUG USE FOR UNKNOWN INDICATION
     Dosage: 500MG WITH 400UI

REACTIONS (6)
  - CHEST PAIN [None]
  - DYSPNOEA [None]
  - PAINFUL RESPIRATION [None]
  - PNEUMONIA [None]
  - PULMONARY EMBOLISM [None]
  - VOMITING [None]
